FAERS Safety Report 18337355 (Version 1)
Quarter: 2020Q4

REPORT INFORMATION
  Report Type: Spontaneous
  Country: JP (occurrence: JP)
  Receive Date: 20201002
  Receipt Date: 20201002
  Transmission Date: 20210113
  Serious: Yes (Hospitalization)
  Sender: FDA-Public Use
  Company Number: JP-SAKK-2020SA268100AA

PATIENT

DRUGS (1)
  1. DUPIXENT [Suspect]
     Active Substance: DUPILUMAB
     Indication: DERMATITIS ATOPIC
     Route: 058

REACTIONS (5)
  - Subcutaneous abscess [Unknown]
  - Skin exfoliation [Unknown]
  - Pruritus [Unknown]
  - Acanthosis [Unknown]
  - Psoriasis [Unknown]

NARRATIVE: CASE EVENT DATE: 202009
